FAERS Safety Report 9463691 (Version 2)
Quarter: 2013Q4

REPORT INFORMATION
  Report Type: Report from Study
  Country: GB (occurrence: GB)
  Receive Date: 20130819
  Receipt Date: 20131112
  Transmission Date: 20140711
  Serious: Yes (Hospitalization, Other)
  Sender: FDA-Public Use
  Company Number: PHFR2013GB004701

PATIENT
  Age: 52 Year
  Sex: Male

DRUGS (6)
  1. GILENYA [Suspect]
     Indication: MULTIPLE SCLEROSIS
     Dosage: 0.5 MG, QD
     Route: 048
     Dates: start: 20130814
  2. MODAFINIL [Concomitant]
  3. TIZADINE [Concomitant]
     Dosage: 8 MG, BID
  4. AMITRIPTYLINE [Concomitant]
     Dosage: 50 MG, QD
  5. SOLIFENACIN SUCCINATE [Concomitant]
     Dosage: 10 MG, QD
  6. CLARITHROMYCIN [Concomitant]

REACTIONS (2)
  - Electrocardiogram ST segment elevation [Not Recovered/Not Resolved]
  - Hypotension [Recovered/Resolved]
